FAERS Safety Report 5221904-6 (Version None)
Quarter: 2007Q1

REPORT INFORMATION
  Report Type: 
  Country: None (occurrence: None)
  Receive Date: 20070129
  Receipt Date: 20051208
  Transmission Date: 20070707
  Serious: No
  Sender: FDA-Public Use
  Company Number: US-GLAXOSMITHKLINE-A0585136A

PATIENT
  Sex: Female

DRUGS (6)
  1. BUPROPION HYDROCHLORIDE [Suspect]
     Indication: DEPRESSION
     Dosage: 150MG PER DAY
     Route: 048
     Dates: start: 20050301
  2. WELLBUTRIN XL [Suspect]
     Indication: DEPRESSION
     Dosage: 150MG PER DAY
     Route: 048
  3. NORTRIPTYLINE HCL [Concomitant]
  4. CLONAZEPAM [Concomitant]
  5. DYAZIDE [Concomitant]
  6. K-DUR 10 [Concomitant]

REACTIONS (8)
  - ABDOMINAL DISTENSION [None]
  - DIARRHOEA [None]
  - DRUG INEFFECTIVE [None]
  - MALAISE [None]
  - SPEECH DISORDER [None]
  - TENSION HEADACHE [None]
  - TREMOR [None]
  - VISION BLURRED [None]
